FAERS Safety Report 14111524 (Version 2)
Quarter: 2017Q4

REPORT INFORMATION
  Report Type: Report from Study
  Country: US (occurrence: US)
  Receive Date: 20171020
  Receipt Date: 20171120
  Transmission Date: 20180321
  Serious: Yes (Death, Hospitalization, Other)
  Sender: FDA-Public Use
  Company Number: US-BAYER-2017-175531

PATIENT
  Age: 65 Year
  Sex: Male

DRUGS (10)
  1. ONDASETRON [Concomitant]
     Active Substance: ONDANSETRON
  2. PANTOPRAZOLE [Concomitant]
     Active Substance: PANTOPRAZOLE
  3. XOFIGO [Suspect]
     Active Substance: RADIUM RA-223 DICHLORIDE
     Indication: METASTASES TO BONE
     Dosage: UNK
     Dates: start: 20170714
  4. AMLODIPINE [Concomitant]
     Active Substance: AMLODIPINE BESYLATE
  5. REGLAN [Concomitant]
     Active Substance: METOCLOPRAMIDE HYDROCHLORIDE
  6. XOFIGO [Suspect]
     Active Substance: RADIUM RA-223 DICHLORIDE
     Indication: HORMONE-REFRACTORY PROSTATE CANCER
     Dosage: UNK
     Dates: start: 20170616
  7. XOFIGO [Suspect]
     Active Substance: RADIUM RA-223 DICHLORIDE
     Indication: HORMONE-REFRACTORY PROSTATE CANCER
     Dosage: 139.50 UCI, ONCE EVERY 28 DAYS
     Route: 042
     Dates: start: 20170811
  8. LORAZEPAM. [Concomitant]
     Active Substance: LORAZEPAM
  9. OMEPRAZOLE. [Concomitant]
     Active Substance: OMEPRAZOLE
  10. LOSARTAN. [Concomitant]
     Active Substance: LOSARTAN

REACTIONS (11)
  - Death [Fatal]
  - Colon adenoma [None]
  - Fall [None]
  - Asthenia [None]
  - Hormone-refractory prostate cancer [None]
  - Pancytopenia [None]
  - Chronic gastritis [None]
  - Gastrointestinal haemorrhage [None]
  - Haemoglobin decreased [None]
  - Prostatic specific antigen increased [None]
  - Oesophagitis [None]

NARRATIVE: CASE EVENT DATE: 20170912
